FAERS Safety Report 9733329 (Version 1)
Quarter: 2013Q4

REPORT INFORMATION
  Report Type: Report from Study
  Country: CA (occurrence: CA)
  Receive Date: 20131205
  Receipt Date: 20131205
  Transmission Date: 20140711
  Serious: Yes (Other)
  Sender: FDA-Public Use
  Company Number: CA-UCBSA-104495

PATIENT
  Age: 80 Year
  Sex: Female
  Weight: 57 kg

DRUGS (10)
  1. CIMZIA [Suspect]
     Indication: RHEUMATOID ARTHRITIS
     Route: 058
     Dates: start: 20121221, end: 20130830
  2. CIMZIA [Suspect]
     Indication: RHEUMATOID ARTHRITIS
     Route: 058
     Dates: start: 20131004, end: 20131106
  3. FOLIC ACID [Concomitant]
     Indication: VITAMIN SUPPLEMENTATION
     Route: 048
     Dates: start: 2012
  4. VALSARTAN [Concomitant]
     Indication: HYPERTENSION
     Dosage: DOSE PER INTAKE: 160/25 MG
     Route: 048
  5. MTX [Concomitant]
     Indication: RHEUMATOID ARTHRITIS
     Route: 058
     Dates: start: 2012
  6. NORVASC [Concomitant]
     Indication: HYPERTENSION
     Route: 048
  7. PREMARIN [Concomitant]
     Indication: HORMONE REPLACEMENT THERAPY
     Route: 048
  8. DIDROCAL [Concomitant]
  9. CELEBREX [Concomitant]
     Dosage: DOSE STRENGTH: 200 MG
  10. ZOPLICONE [Concomitant]
     Dosage: DOSE STRENGTH: 7.5 MG  - 1/2 TAB AT BED TIME

REACTIONS (2)
  - Localised infection [Recovered/Resolved]
  - Atrial fibrillation [Recovered/Resolved]
